FAERS Safety Report 5109397-0 (Version None)
Quarter: 2006Q3

REPORT INFORMATION
  Report Type: 
  Country: None (occurrence: None)
  Receive Date: 20060918
  Receipt Date: 20060906
  Transmission Date: 20061208
  Serious: Yes (Hospitalization)
  Sender: FDA-Public Use
  Company Number: 229562

PATIENT
  Age: 46 Year
  Sex: Male
  Weight: 70.5 kg

DRUGS (8)
  1. AVASTIN [Suspect]
     Indication: PANCREATIC CARCINOMA
     Dates: end: 20060821
  2. GEMCITABINE [Suspect]
     Indication: PANCREATIC CARCINOMA
     Dosage: 1000 MG/M2, INTRAVENOUS
     Route: 042
     Dates: end: 20060821
  3. FENTANYL (FENTANYL CITRATE) [Concomitant]
  4. VICODIN [Concomitant]
  5. ZOFRAN [Concomitant]
  6. ATIVAN [Concomitant]
  7. CREON [Concomitant]
  8. THORAZINE [Concomitant]

REACTIONS (9)
  - BLOOD GLUCOSE INCREASED [None]
  - DECREASED APPETITE [None]
  - HAEMATOCRIT DECREASED [None]
  - HAEMOGLOBIN DECREASED [None]
  - NAUSEA [None]
  - OBSTRUCTION GASTRIC [None]
  - RED BLOOD CELL COUNT DECREASED [None]
  - RED CELL DISTRIBUTION WIDTH INCREASED [None]
  - VOMITING [None]
